FAERS Safety Report 9039255 (Version 1)
Quarter: 2013Q1

REPORT INFORMATION
  Report Type: Spontaneous
  Country: US (occurrence: None)
  Receive Date: 20130123
  Receipt Date: 20130123
  Transmission Date: 20140127
  Serious: Yes (Hospitalization)
  Sender: FDA-Public Use
  Company Number: None

PATIENT
  Age: 87 Year
  Sex: Male
  Weight: 73 kg

DRUGS (1)
  1. OSELTAMIVIR [Suspect]
     Indication: INFLUENZA
     Dates: start: 20130114, end: 20130116

REACTIONS (9)
  - Disorientation [None]
  - Confusional state [None]
  - Hallucination, visual [None]
  - Restlessness [None]
  - Agitation [None]
  - Insomnia [None]
  - Gait disturbance [None]
  - Gait disturbance [None]
  - Dysarthria [None]
